FAERS Safety Report 10284319 (Version 1)
Quarter: 2014Q3

REPORT INFORMATION
  Report Type: Spontaneous
  Country: CN (occurrence: None)
  Receive Date: 20140703
  Receipt Date: 20140703
  Transmission Date: 20150326
  Serious: Yes (Hospitalization)
  Sender: FDA-Public Use
  Company Number: B1006132A

PATIENT
  Age: 24 Year
  Sex: Female
  Weight: 43.91 kg

DRUGS (1)
  1. PAROXETINE HYDROCHLORIDE TABLET (PAROXETINE HYDROCHLORIDE) [Suspect]
     Active Substance: PAROXETINE HYDROCHLORIDE
     Indication: AFFECTIVE DISORDER
     Route: 048
     Dates: start: 20130615, end: 20130616

REACTIONS (3)
  - Dizziness [None]
  - Foaming at mouth [None]
  - Chest discomfort [None]

NARRATIVE: CASE EVENT DATE: 20130616
